FAERS Safety Report 12084818 (Version 2)
Quarter: 2016Q1

REPORT INFORMATION
  Report Type: Spontaneous
  Country: US (occurrence: US)
  Receive Date: 20160217
  Receipt Date: 20160218
  Transmission Date: 20160526
  Serious: No
  Sender: FDA-Public Use
  Company Number: US-WATSON-2015-09115

PATIENT
  Age: 27 Year
  Sex: Female

DRUGS (1)
  1. MICROGESTIN FE [Suspect]
     Active Substance: ETHINYL ESTRADIOL\FERROUS FUMARATE\NORETHINDRONE ACETATE
     Indication: MENSTRUATION IRREGULAR
     Dosage: 1 DF, DAILY
     Route: 048
     Dates: start: 201412

REACTIONS (3)
  - Hypotension [None]
  - Vaginal haemorrhage [Recovering/Resolving]
  - Abdominal pain upper [Not Recovered/Not Resolved]

NARRATIVE: CASE EVENT DATE: 201512
